FAERS Safety Report 25369873 (Version 1)
Quarter: 2025Q2

REPORT INFORMATION
  Report Type: Spontaneous
  Country: DE (occurrence: DE)
  Receive Date: 20250528
  Receipt Date: 20250528
  Transmission Date: 20250716
  Serious: Yes (Other)
  Sender: MYLAN
  Company Number: DE-SANDOZ-SDZ2025DE026404

PATIENT
  Age: 37 Year
  Sex: Male

DRUGS (4)
  1. PAROXETINE [Suspect]
     Active Substance: PAROXETINE
     Indication: Product used for unknown indication
  2. PAROXETINE [Suspect]
     Active Substance: PAROXETINE
     Route: 065
  3. PAROXETINE [Suspect]
     Active Substance: PAROXETINE
     Route: 065
  4. PAROXETINE [Suspect]
     Active Substance: PAROXETINE

REACTIONS (2)
  - Hyperprolactinaemia [Unknown]
  - Sperm concentration decreased [Unknown]
